FAERS Safety Report 8814513 (Version 2)
Quarter: 2012Q4

REPORT INFORMATION
  Report Type: Spontaneous
  Country: US (occurrence: None)
  Receive Date: 20120925
  Receipt Date: 20121024
  Transmission Date: 20130627
  Serious: Yes (Hospitalization)
  Sender: FDA-Public Use
  Company Number: 2012-485

PATIENT
  Age: 57 Year
  Sex: Female

DRUGS (1)
  1. PRIALT [Suspect]
     Indication: FAILED BACK SURGERY SYNDROME
     Dosage: 0.05 mcg, once/hour, intrathecal
     Route: 037
     Dates: start: 20120827, end: 20120828

REACTIONS (3)
  - Malaise [None]
  - Vomiting [None]
  - Middle insomnia [None]
